FAERS Safety Report 6752214-3 (Version None)
Quarter: 2010Q2

REPORT INFORMATION
  Report Type: 
  Country: None (occurrence: None)
  Receive Date: 20100601
  Receipt Date: 20100601
  Transmission Date: 20101027
  Serious: Yes (Hospitalization, Other)
  Sender: FDA-Public Use
  Company Number: None

PATIENT
  Age: 81 Year
  Sex: Female
  Weight: 62.5964 kg

DRUGS (7)
  1. AMOXICILLIN AND CLAVULANATE POTASSIUM [Suspect]
     Indication: INFECTED CYST
     Dosage: 1 PILL 875MG ONCE ORALLY
     Route: 048
     Dates: start: 20100120
  2. CRESTOR [Concomitant]
  3. NEURONTIN [Concomitant]
  4. METOPROLOL TARTRATE [Concomitant]
  5. SYNTHROID [Concomitant]
  6. PROTONIX [Concomitant]
  7. MOBIC [Concomitant]

REACTIONS (1)
  - HAEMATEMESIS [None]
